FAERS Safety Report 4381170-0 (Version None)
Quarter: 2004Q2

REPORT INFORMATION
  Report Type: 
  Country: None (occurrence: None)
  Receive Date: 20040621
  Receipt Date: 20040504
  Transmission Date: 20050107
  Serious: Yes (Other)
  Sender: FDA-Public Use
  Company Number: PHEH2004US04965

PATIENT
  Age: 41 Year
  Sex: Male

DRUGS (5)
  1. CLOZARIL [Suspect]
     Indication: SCHIZOAFFECTIVE DISORDER
     Dosage: 100 MG/DAY
     Route: 048
     Dates: start: 20040217
  2. ESKALITH [Concomitant]
  3. BENZTROPEINE [Concomitant]
  4. PROLIXIN [Concomitant]
  5. AMBIEN [Concomitant]

REACTIONS (6)
  - CEREBRAL DISORDER [None]
  - COMMUNICATION DISORDER [None]
  - ELECTROENCEPHALOGRAM ABNORMAL [None]
  - INFECTION [None]
  - LEUKOCYTOSIS [None]
  - MEMORY IMPAIRMENT [None]
